FAERS Safety Report 19009372 (Version 1)
Quarter: 2021Q1

REPORT INFORMATION
  Report Type: Spontaneous
  Country: DE (occurrence: DE)
  Receive Date: 20210316
  Receipt Date: 20210316
  Transmission Date: 20210420
  Serious: Yes (Other)
  Sender: FDA-Public Use
  Company Number: DE-BAUSCH-BL-2021-008175

PATIENT
  Age: 57 Year
  Sex: Female

DRUGS (5)
  1. CORTISONE [Concomitant]
     Active Substance: CORTISONE
     Indication: PRODUCT USED FOR UNKNOWN INDICATION
  2. HYDROCORTISONE. [Suspect]
     Active Substance: HYDROCORTISONE
     Indication: PRODUCT USED FOR UNKNOWN INDICATION
     Route: 065
  3. ENTYVIO [Suspect]
     Active Substance: VEDOLIZUMAB
     Indication: CROHN^S DISEASE
     Route: 065
     Dates: start: 201903
  4. ENTYVIO [Suspect]
     Active Substance: VEDOLIZUMAB
     Route: 058
     Dates: start: 202011
  5. BUDENOFALK [Concomitant]
     Active Substance: BUDESONIDE
     Indication: PRODUCT USED FOR UNKNOWN INDICATION
     Dosage: UNK

REACTIONS (10)
  - Drug level increased [Unknown]
  - Constipation [Unknown]
  - Hydroxycorticosteroids increased [Unknown]
  - Injection site discolouration [Unknown]
  - Blood pressure increased [Unknown]
  - Diarrhoea [Unknown]
  - Migraine [Unknown]
  - Weight increased [Unknown]
  - Pain [Unknown]
  - Therapeutic product effect decreased [Unknown]
